FAERS Safety Report 13545175 (Version 1)
Quarter: 2017Q2

REPORT INFORMATION
  Report Type: Spontaneous
  Country: US (occurrence: US)
  Receive Date: 20170515
  Receipt Date: 20170515
  Transmission Date: 20170830
  Serious: Yes (Hospitalization)
  Sender: FDA-Public Use
  Company Number: None

PATIENT
  Age: 84 Year
  Sex: Female
  Weight: 87.54 kg

DRUGS (5)
  1. OPDIVO [Suspect]
     Active Substance: NIVOLUMAB
     Indication: HODGKIN^S DISEASE
     Dosage: ROUTE - IVPB (INTRAVENOUS - PIGGY BACK)
     Route: 042
     Dates: start: 20170323
  2. LEVOFLOXACIN. [Concomitant]
     Active Substance: LEVOFLOXACIN
  3. OPDIVO [Suspect]
     Active Substance: NIVOLUMAB
     Indication: HODGKIN^S DISEASE
     Dosage: ROUTE - INTRAVENOUS (PIGGY BACK)
     Route: 042
     Dates: start: 20170413
  4. OPDIVO [Suspect]
     Active Substance: NIVOLUMAB
     Indication: HODGKIN^S DISEASE
     Dosage: ROUTE - IVPB (INTRAVENOUS PIGGY BACK)
     Route: 042
     Dates: start: 20170323
  5. OPDIVO [Suspect]
     Active Substance: NIVOLUMAB
     Indication: HODGKIN^S DISEASE
     Dosage: ROUTE - INTRAVENOUS (PIGGY BACK)
     Route: 042
     Dates: start: 20170413

REACTIONS (6)
  - Pneumonia [None]
  - Atelectasis [None]
  - Thrombocytopenia [None]
  - Blood pressure increased [None]
  - Febrile neutropenia [None]
  - Anaemia [None]

NARRATIVE: CASE EVENT DATE: 20170413
